FAERS Safety Report 7516756-5 (Version None)
Quarter: 2011Q2

REPORT INFORMATION
  Report Type: 
  Country: None (occurrence: None)
  Receive Date: 20110601
  Receipt Date: 20110526
  Transmission Date: 20111010
  Serious: Yes (Hospitalization)
  Sender: FDA-Public Use
  Company Number: DE-BRISTOL-MYERS SQUIBB COMPANY-15781917

PATIENT
  Age: 57 Year
  Sex: Male
  Weight: 80 kg

DRUGS (4)
  1. HYPERTENSION MEDICATION [Concomitant]
  2. IPILIMUMAB [Suspect]
     Indication: MALIGNANT MELANOMA
     Dosage: 1DF:3 UNITS NOS
     Dates: start: 20110412, end: 20110525
  3. VOLTAROL RETARD [Concomitant]
     Dosage: 1DF:50/4 MG
     Dates: end: 20110524
  4. METOCLOPRAMIDE [Concomitant]

REACTIONS (3)
  - CONSTIPATION [None]
  - DIARRHOEA [None]
  - VOMITING [None]
